FAERS Safety Report 4350012-1 (Version None)
Quarter: 2004Q2

REPORT INFORMATION
  Report Type: 
  Country: None (occurrence: None)
  Receive Date: 20040428
  Receipt Date: 20040428
  Transmission Date: 20050107
  Serious: Yes (Hospitalization)
  Sender: FDA-Public Use
  Company Number: None

PATIENT
  Sex: Female

DRUGS (15)
  1. IBUPROFEN [Suspect]
     Indication: MUSCULOSKELETAL DISORDER
     Dosage: 800 MG QID PRN ORAL
     Route: 048
  2. ASPIRIN [Suspect]
     Indication: MUSCULOSKELETAL DISORDER
     Dosage: 325 MG DAILY ORAL
     Route: 048
  3. CALCIUM CARBONATE [Concomitant]
  4. CITALOPRAM [Concomitant]
  5. CYCLOBENZAPRINE [Concomitant]
  6. FLUOXETINE [Concomitant]
  7. HYDROCHLOROTHIAZIDE [Concomitant]
  8. LISINOPRIL [Concomitant]
  9. METOPROLOL [Concomitant]
  10. KCL TAB [Concomitant]
  11. RABEPRAZOLE SODIUM [Concomitant]
  12. RANITIDINE [Concomitant]
  13. SIMVASTATIN [Concomitant]
  14. TRAZODONE HCL [Concomitant]
  15. VITAMIN D [Concomitant]

REACTIONS (1)
  - UPPER GASTROINTESTINAL HAEMORRHAGE [None]
